FAERS Safety Report 20506326 (Version 1)
Quarter: 2022Q1

REPORT INFORMATION
  Report Type: Spontaneous
  Country: US (occurrence: US)
  Receive Date: 20220223
  Receipt Date: 20220223
  Transmission Date: 20220424
  Serious: Yes (Other)
  Sender: FDA-Public Use
  Company Number: US-MYLANLABS-2022M1014501

PATIENT
  Age: 59 Year
  Sex: Male

DRUGS (3)
  1. PHENYTOIN [Suspect]
     Active Substance: PHENYTOIN
     Indication: Temporal lobe epilepsy
     Dosage: UNK
     Route: 065
  2. LEVETIRACETAM [Suspect]
     Active Substance: LEVETIRACETAM
     Indication: Temporal lobe epilepsy
     Dosage: 1000 MILLIGRAM, BID
     Route: 065
     Dates: start: 2013, end: 2015
  3. LEVETIRACETAM [Suspect]
     Active Substance: LEVETIRACETAM
     Dosage: 1500 MILLIGRAM, BID DOSE WAS INCREASED
     Route: 065
     Dates: start: 2015

REACTIONS (5)
  - Central nervous system lesion [Unknown]
  - Depression [Recovered/Resolved]
  - Condition aggravated [Recovered/Resolved]
  - Hypometabolism [Unknown]
  - Nervous system disorder [Unknown]
